FAERS Safety Report 7809500-5 (Version None)
Quarter: 2011Q4

REPORT INFORMATION
  Report Type: 
  Country: None (occurrence: None)
  Receive Date: 20111007
  Receipt Date: 20110928
  Transmission Date: 20120403
  Serious: Yes (Other)
  Sender: FDA-Public Use
  Company Number: 2011SP046312

PATIENT
  Age: 26 Year
  Sex: Female
  Weight: 76 kg

DRUGS (2)
  1. NUVARING [Suspect]
     Indication: CONTRACEPTION
     Dosage: QM;VAG, QM;VAG
     Route: 067
     Dates: start: 20080708, end: 20110201
  2. NUVARING [Suspect]
     Indication: CONTRACEPTION
     Dosage: QM;VAG, QM;VAG
     Route: 067
     Dates: start: 20110501

REACTIONS (7)
  - PREGNANCY WITH CONTRACEPTIVE DEVICE [None]
  - ABORTION SPONTANEOUS [None]
  - BLIGHTED OVUM [None]
  - MATERNAL EXPOSURE DURING PREGNANCY [None]
  - NAUSEA [None]
  - VOMITING [None]
  - METRORRHAGIA [None]
